FAERS Safety Report 7061308-7 (Version None)
Quarter: 2010Q4

REPORT INFORMATION
  Report Type: 
  Country: None (occurrence: None)
  Receive Date: 20101026
  Receipt Date: 20101019
  Transmission Date: 20110411
  Serious: Yes (Hospitalization)
  Sender: FDA-Public Use
  Company Number: JP-SANOFI-AVENTIS-2010SA063647

PATIENT
  Age: 66 Year
  Sex: Male
  Weight: 48.5 kg

DRUGS (9)
  1. OXALIPLATIN [Suspect]
     Indication: COLON CANCER
     Route: 042
     Dates: start: 20100609, end: 20100609
  2. OXALIPLATIN [Suspect]
     Route: 042
     Dates: start: 20100816, end: 20100816
  3. XELODA [Suspect]
     Indication: COLON CANCER
     Route: 048
     Dates: start: 20100609, end: 20100830
  4. AVASTIN [Suspect]
     Indication: COLON CANCER
     Route: 042
     Dates: start: 20100609, end: 20100609
  5. AVASTIN [Suspect]
     Route: 042
     Dates: start: 20100816, end: 20100816
  6. DEXAMETHASONE [Concomitant]
     Indication: PROPHYLAXIS
     Route: 048
     Dates: start: 20100608
  7. DEXAMETHASONE SODIUM PHOSPHATE [Concomitant]
     Indication: PROPHYLAXIS
     Route: 041
  8. FERROUS SULFATE [Concomitant]
     Route: 048
     Dates: start: 20100622
  9. GASTER [Concomitant]
     Route: 048
     Dates: start: 20100630

REACTIONS (1)
  - GASTRIC ULCER HAEMORRHAGE [None]
